FAERS Safety Report 7486341-2 (Version None)
Quarter: 2011Q2

REPORT INFORMATION
  Report Type: 
  Country: None (occurrence: None)
  Receive Date: 20110517
  Receipt Date: 20110506
  Transmission Date: 20111010
  Serious: Yes (Other)
  Sender: FDA-Public Use
  Company Number: PHHY2011AU39040

PATIENT
  Sex: Female

DRUGS (2)
  1. DANAZOL [Suspect]
     Indication: ENDOMETRIOSIS
     Dosage: UNK UKN, UNK
  2. MEDROXYPROGESTERONE [Suspect]
     Indication: INFERTILITY
     Dosage: UNK UKN, UNK

REACTIONS (3)
  - EPIGASTRIC DISCOMFORT [None]
  - ABDOMINAL DISTENSION [None]
  - FOCAL NODULAR HYPERPLASIA [None]
